FAERS Safety Report 7294422-1 (Version None)
Quarter: 2011Q1

REPORT INFORMATION
  Report Type: 
  Country: None (occurrence: None)
  Receive Date: 20110215
  Receipt Date: 20110207
  Transmission Date: 20110831
  Serious: Yes (Hospitalization)
  Sender: FDA-Public Use
  Company Number: US-BRISTOL-MYERS SQUIBB COMPANY-15535933

PATIENT
  Age: 42 Year
  Sex: Female
  Weight: 75 kg

DRUGS (6)
  1. CARBOPLATIN [Suspect]
     Indication: NON-SMALL CELL LUNG CANCER
     Dosage: LAST INFUSION ON 10AUG2009.NO OF INFUSIONS:2; RESTARTED ON 22SEP2009. N
     Route: 042
     Dates: start: 20090720
  2. CIPROFLOXACIN [Suspect]
     Indication: PNEUMONIA
  3. OXACILLIN SODIUM [Suspect]
     Indication: INFECTION
  4. ENALAPRIL [Suspect]
     Indication: BLOOD PRESSURE MANAGEMENT
  5. PACLITAXEL [Suspect]
     Indication: NON-SMALL CELL LUNG CANCER
     Dosage: RESTARTED ON 22SEP2009.LAST INFUSION ON 10AUG2009.NO OF INFUSIONS:2
     Route: 042
     Dates: start: 20090720
  6. VANCOMYCIN [Suspect]
     Indication: PNEUMONIA

REACTIONS (3)
  - DEVICE RELATED SEPSIS [None]
  - RENAL FAILURE ACUTE [None]
  - PNEUMONIA [None]
